FAERS Safety Report 4432639-1 (Version None)
Quarter: 2004Q3

REPORT INFORMATION
  Report Type: 
  Country: None (occurrence: None)
  Receive Date: 20040820
  Receipt Date: 20040806
  Transmission Date: 20050211
  Serious: Yes (Other)
  Sender: FDA-Public Use
  Company Number: 2004055379

PATIENT
  Age: 78 Year
  Sex: Female

DRUGS (1)
  1. DILANTIN [Suspect]
     Indication: CONVULSION
     Dosage: (300 MG), GASTROSTOMY TUBE
     Dates: start: 19940706

REACTIONS (2)
  - CONVULSION [None]
  - DRUG LEVEL CHANGED [None]
